FAERS Safety Report 6136286-5 (Version None)
Quarter: 2009Q1

REPORT INFORMATION
  Report Type: 
  Country: None (occurrence: None)
  Receive Date: 20090330
  Receipt Date: 20090320
  Transmission Date: 20090719
  Serious: Yes (Other)
  Sender: FDA-Public Use
  Company Number: SA-ASTRAZENECA-2009SE01228

PATIENT
  Age: 24 Year
  Sex: Female

DRUGS (5)
  1. HEAVY MARCAINE (ASTRAZENECA ISTANBUL) [Suspect]
     Indication: LABOUR PAIN
     Route: 037
  2. FENTANYL-25 [Concomitant]
     Indication: LABOUR PAIN
     Route: 037
  3. BUPIVACAINE+FENTANYL [Concomitant]
     Indication: LABOUR PAIN
     Dosage: BUPIVACAINE 0.125% + FENTANYL 2MCG/ML
     Route: 008
  4. LIDOCAINE [Concomitant]
     Indication: ANAESTHESIA
  5. NAHCO3 [Concomitant]
     Indication: ANAESTHESIA

REACTIONS (3)
  - PARAPARESIS [None]
  - POOR QUALITY DRUG ADMINISTERED [None]
  - SENSORY LOSS [None]
